FAERS Safety Report 8132552-2 (Version None)
Quarter: 2012Q1

REPORT INFORMATION
  Report Type: 
  Country: None (occurrence: None)
  Receive Date: 20120213
  Receipt Date: 20120209
  Transmission Date: 20120608
  Serious: Yes (Other)
  Sender: FDA-Public Use
  Company Number: US-PFIZER INC-2012036376

PATIENT
  Sex: Male
  Weight: 109 kg

DRUGS (5)
  1. LIPITOR [Suspect]
     Indication: BLOOD CHOLESTEROL INCREASED
     Dosage: 10 MG, DAILY
     Route: 048
     Dates: end: 20111101
  2. HYDROCODONE [Concomitant]
     Indication: REITER'S SYNDROME
     Dosage: 500 MG, 2X/DAY
  3. CELEBREX [Concomitant]
     Indication: REITER'S SYNDROME
     Dosage: 200 MG, DAILY
     Route: 048
  4. CELESTONE [Concomitant]
     Indication: ASTHMA
     Dosage: 60 ML, DAILY
     Route: 048
  5. METFORMIN [Concomitant]
     Indication: DIABETES MELLITUS
     Dosage: 2000 MG, DAILY
     Route: 048

REACTIONS (1)
  - BLOOD CHOLESTEROL INCREASED [None]
